FAERS Safety Report 10297551 (Version 1)
Quarter: 2014Q3

REPORT INFORMATION
  Report Type: Spontaneous
  Country: AR (occurrence: AR)
  Receive Date: 20140711
  Receipt Date: 20140711
  Transmission Date: 20150326
  Serious: Yes (Death)
  Sender: FDA-Public Use
  Company Number: AR-PFIZER INC-2014190554

PATIENT
  Age: 64 Year
  Sex: Female

DRUGS (1)
  1. SUTENT [Suspect]
     Active Substance: SUNITINIB MALATE
     Indication: METASTATIC RENAL CELL CARCINOMA
     Dosage: 50 MG, (4WEEKS ON, 2 WEEKS OFF SCHEME)
     Dates: start: 20130605

REACTIONS (9)
  - Death [Fatal]
  - Fall [Unknown]
  - Balance disorder [Unknown]
  - Disease progression [Unknown]
  - Soft tissue inflammation [Unknown]
  - Gait disturbance [Unknown]
  - Mobility decreased [Unknown]
  - Dysphagia [Unknown]
  - Metastatic renal cell carcinoma [Unknown]

NARRATIVE: CASE EVENT DATE: 20140530
